FAERS Safety Report 16636799 (Version 1)
Quarter: 2019Q3

REPORT INFORMATION
  Report Type: Spontaneous
  Country: FR (occurrence: FR)
  Receive Date: 20190726
  Receipt Date: 20190726
  Transmission Date: 20191004
  Serious: Yes (Hospitalization)
  Sender: FDA-Public Use
  Company Number: PHHY2019FR170438

PATIENT
  Age: 54 Year
  Sex: Male
  Weight: 87.5 kg

DRUGS (36)
  1. COLCHICINE OPOCALCIUM [Suspect]
     Active Substance: COLCHICINE
     Indication: GOUT
     Dosage: 2 MG, QD
     Route: 048
     Dates: start: 20190615
  2. PANTOPRAZOLE MYLAN [Suspect]
     Active Substance: PANTOPRAZOLE SODIUM
     Indication: PROPHYLAXIS AGAINST GASTROINTESTINAL ULCER
     Dosage: 20 MG, QD
     Route: 048
     Dates: start: 20190505
  3. DOLIPRANE [Concomitant]
     Active Substance: ACETAMINOPHEN
     Indication: PAIN
     Dosage: 1 G, UNK
     Route: 048
  4. INNOHEP [Suspect]
     Active Substance: TINZAPARIN SODIUM
     Dosage: 17000 IU, QD
     Route: 058
     Dates: start: 20190520
  5. VITAMIN K1 [Suspect]
     Active Substance: PHYTONADIONE
     Indication: PROTHROMBIN TIME RATIO DECREASED
     Dosage: 20 MG, QD
     Route: 042
     Dates: start: 20190604
  6. TOPALGIC [TRAMADOL HYDROCHLORIDE] [Suspect]
     Active Substance: TRAMADOL HYDROCHLORIDE
     Indication: PAIN
     Dosage: 200 MG, QD
     Route: 042
     Dates: start: 20190515
  7. VITAMIN K1 [Suspect]
     Active Substance: PHYTONADIONE
     Dosage: 20 MG, QD
     Route: 042
     Dates: start: 20190609
  8. VANCOMYCIN SANDOZ [Suspect]
     Active Substance: VANCOMYCIN
     Indication: SEPSIS
     Dosage: 3080 MG, QD
     Route: 042
     Dates: start: 20190605
  9. VANCOMYCIN SANDOZ [Suspect]
     Active Substance: VANCOMYCIN
     Dosage: 3080 MG, QD
     Route: 042
     Dates: start: 20190628
  10. ACTISKENAN [Suspect]
     Active Substance: MORPHINE SULFATE
     Dosage: 15 MG, QD
     Route: 048
     Dates: start: 20190705
  11. MAG 2 [Suspect]
     Active Substance: MAGNESIUM
     Dosage: 2 DF, QD (2-0-0)
     Route: 048
     Dates: start: 20190705
  12. REMIFENTANIL MYLAN [Suspect]
     Active Substance: REMIFENTANIL
     Indication: ANAESTHESIA
     Dosage: 796 UG, QD
     Route: 042
     Dates: start: 20190515
  13. CEFTRIAXONE. [Suspect]
     Active Substance: CEFTRIAXONE
     Dosage: 1 G, QD
     Route: 042
     Dates: start: 20190613
  14. POLARAMINE [Suspect]
     Active Substance: DEXCHLORPHENIRAMINE MALEATE
     Indication: ALLERGY PROPHYLAXIS
     Dosage: 5 MG, QD
     Route: 042
     Dates: start: 20190606
  15. OROZAMUDOL [Suspect]
     Active Substance: TRAMADOL
     Dosage: 50 MG, UNK
     Route: 048
     Dates: start: 20190602
  16. OCTREOTIDE. [Suspect]
     Active Substance: OCTREOTIDE
     Dosage: 600 UG, QD
     Route: 042
     Dates: start: 20190607
  17. ACTISKENAN [Suspect]
     Active Substance: MORPHINE SULFATE
     Indication: PAIN
     Dosage: 15 MG, QD
     Route: 048
     Dates: start: 20190629
  18. COLCHICINE OPOCALCIUM [Suspect]
     Active Substance: COLCHICINE
     Dosage: 2 MG, QD
     Route: 048
     Dates: start: 20190617
  19. PIPERACILLINE / TAZOBACTAM MYLAN [Suspect]
     Active Substance: PIPERACILLIN SODIUM\TAZOBACTAM SODIUM
     Indication: SEPSIS
     Dosage: 12 G, QD (1-1-1)
     Route: 042
     Dates: start: 20190604
  20. PIPERACILLINE / TAZOBACTAM MYLAN [Suspect]
     Active Substance: PIPERACILLIN SODIUM\TAZOBACTAM SODIUM
     Dosage: 12 G, QD (1-1-1)
     Route: 042
     Dates: start: 20190607
  21. PROPOFOL. [Suspect]
     Active Substance: PROPOFOL
     Indication: ANAESTHESIA
     Dosage: 1088 MG, QD
     Route: 042
     Dates: start: 20190515
  22. METHYLPREDNISOLONE MYLAN [Suspect]
     Active Substance: METHYLPREDNISOLONE
     Indication: ALLERGY PROPHYLAXIS
     Dosage: 60 MG, QD
     Route: 042
     Dates: start: 20190606
  23. NEFOPAM MYLAN [Suspect]
     Active Substance: NEFOPAM
     Indication: PAIN
     Dosage: 20 MG, UNK
     Route: 042
  24. OROZAMUDOL [Suspect]
     Active Substance: TRAMADOL
     Indication: PAIN
     Dosage: 50 MG, UNK
     Route: 048
     Dates: start: 20190520
  25. KARDEGIC [Concomitant]
     Active Substance: ASPIRIN DL-LYSINE
     Indication: ISCHAEMIC CARDIOMYOPATHY
     Dosage: 75 MG, QD (0-1-0)
     Route: 048
  26. PIPERACILLINE / TAZOBACTAM MYLAN [Suspect]
     Active Substance: PIPERACILLIN SODIUM\TAZOBACTAM SODIUM
     Dosage: 12 G, QD
     Route: 042
     Dates: start: 20190614
  27. DAPTOMYCINE [Suspect]
     Active Substance: DAPTOMYCIN
     Indication: SEPTIC SHOCK
     Dosage: 850 MG, QD
     Route: 042
     Dates: start: 20190701
  28. OCTREOTIDE. [Suspect]
     Active Substance: OCTREOTIDE
     Indication: GASTROINTESTINAL HAEMORRHAGE
     Dosage: 600 UG, QD
     Route: 042
     Dates: start: 20190605
  29. PIPERACILLINE / TAZOBACTAM MYLAN [Suspect]
     Active Substance: PIPERACILLIN SODIUM\TAZOBACTAM SODIUM
     Dosage: 12 G, QD
     Route: 042
     Dates: start: 20190624
  30. MAG 2 [Suspect]
     Active Substance: MAGNESIUM
     Indication: MAGNESIUM DEFICIENCY
     Dosage: 2 DF, QD (2-0-0)
     Route: 048
     Dates: start: 20190618
  31. LOVENOX [Suspect]
     Active Substance: ENOXAPARIN SODIUM
     Indication: THROMBOSIS PROPHYLAXIS
     Dosage: 4000 IU, QD
     Route: 058
     Dates: start: 20190614
  32. AMIKACIN. [Suspect]
     Active Substance: AMIKACIN
     Indication: SEPSIS
     Dosage: 1500 MG, QD
     Route: 042
     Dates: start: 20190604
  33. DAPTOMYCINE [Suspect]
     Active Substance: DAPTOMYCIN
     Dosage: 850 MG, QD
     Route: 042
     Dates: start: 20190704
  34. CETIRIZINE [Suspect]
     Active Substance: CETIRIZINE HYDROCHLORIDE
     Indication: ALLERGY PROPHYLAXIS
     Dosage: 10 MG, QD (0-0-1)
     Route: 048
     Dates: start: 20190606
  35. INNOHEP [Suspect]
     Active Substance: TINZAPARIN SODIUM
     Indication: THROMBOSIS
     Dosage: 17000 IU, QD
     Route: 058
     Dates: start: 20190505
  36. CEFTRIAXONE. [Suspect]
     Active Substance: CEFTRIAXONE
     Indication: SEPSIS
     Dosage: 1 G, QD
     Route: 042
     Dates: start: 20190607

REACTIONS (1)
  - Drug reaction with eosinophilia and systemic symptoms [Not Recovered/Not Resolved]

NARRATIVE: CASE EVENT DATE: 20190701
